FAERS Safety Report 22360508 (Version 1)
Quarter: 2023Q2

REPORT INFORMATION
  Report Type: Spontaneous
  Country: US (occurrence: US)
  Receive Date: 20230524
  Receipt Date: 20230524
  Transmission Date: 20230721
  Serious: Yes (Hospitalization)
  Sender: FDA-Public Use
  Company Number: US-CHIESI-2023CHF02565

PATIENT
  Age: 37 Year
  Sex: Male
  Weight: 56 kg

DRUGS (3)
  1. FERRIPROX [Suspect]
     Active Substance: DEFERIPRONE
     Indication: Haemochromatosis
     Dosage: 1000 MILLIGRAM, BID
     Route: 048
     Dates: start: 20220611
  2. FERRIPROX [Suspect]
     Active Substance: DEFERIPRONE
     Indication: Transfusion
  3. FERRIPROX [Suspect]
     Active Substance: DEFERIPRONE
     Indication: Sickle cell disease

REACTIONS (3)
  - Renal failure [Recovered/Resolved]
  - Sickle cell anaemia with crisis [Recovered/Resolved]
  - Off label use [Not Recovered/Not Resolved]

NARRATIVE: CASE EVENT DATE: 20220611
